FAERS Safety Report 21017876 (Version 1)
Quarter: 2022Q2

REPORT INFORMATION
  Report Type: Spontaneous
  Country: US (occurrence: None)
  Receive Date: 20220628
  Receipt Date: 20220628
  Transmission Date: 20220721
  Serious: Yes (Other)
  Sender: FDA-Public Use
  Company Number: None

PATIENT
  Age: 89 Year
  Sex: Female
  Weight: 70.31 kg

DRUGS (10)
  1. EYLEA [Suspect]
     Active Substance: AFLIBERCEPT
     Indication: Macular degeneration
     Dates: end: 20220504
  2. METOPROLOL [Concomitant]
     Active Substance: METOPROLOL
  3. SIMVASTATIN [Concomitant]
     Active Substance: SIMVASTATIN
  4. ISOSORBIDE [Concomitant]
     Active Substance: ISOSORBIDE
  5. NITROGLYCERIN [Concomitant]
     Active Substance: NITROGLYCERIN
  6. MINERALS\VITAMINS [Concomitant]
     Active Substance: MINERALS\VITAMINS
  7. VITAMIN D NOS [Concomitant]
     Active Substance: VITAMIN D NOS
  8. PYRIDOXINE HYDROCHLORIDE [Concomitant]
     Active Substance: PYRIDOXINE HYDROCHLORIDE
  9. COENZYME Q10 [Concomitant]
     Active Substance: DIETARY SUPPLEMENT\UBIDECARENONE
  10. B12 SL [Concomitant]

REACTIONS (3)
  - Back pain [None]
  - Pain in extremity [None]
  - Musculoskeletal pain [None]

NARRATIVE: CASE EVENT DATE: 20220303
